FAERS Safety Report 13905549 (Version 1)
Quarter: 2017Q3

REPORT INFORMATION
  Report Type: Spontaneous
  Country: US (occurrence: None)
  Receive Date: 20170821
  Receipt Date: 20170821
  Transmission Date: 20171127
  Serious: Yes (Hospitalization)
  Sender: FDA-Public Use
  Company Number: None

PATIENT
  Age: 79 Year
  Sex: Female
  Weight: 66.23 kg

DRUGS (4)
  1. OCUVITE [Concomitant]
     Active Substance: VITAMINS
  2. LOSARTAN. [Concomitant]
     Active Substance: LOSARTAN
  3. VITAMIN D [Concomitant]
     Active Substance: CHOLECALCIFEROL
  4. HYDROXYCHLOROQUINE 200MG TABLETS [Suspect]
     Active Substance: HYDROXYCHLOROQUINE
     Indication: RHEUMATOID ARTHRITIS
     Dosage: ?          QUANTITY:1 ;?
     Route: 048
     Dates: start: 20170620, end: 20170722

REACTIONS (5)
  - Skin exfoliation [None]
  - Rash [None]
  - Therapy cessation [None]
  - Stevens-Johnson syndrome [None]
  - Lip swelling [None]
